FAERS Safety Report 10136914 (Version 1)
Quarter: 2014Q2

REPORT INFORMATION
  Report Type: Report from Study
  Country: GB (occurrence: None)
  Receive Date: 20140425
  Receipt Date: 20140425
  Transmission Date: 20141212
  Serious: Yes (Hospitalization)
  Sender: FDA-Public Use
  Company Number: 2014026821

PATIENT
  Age: 58 Year
  Sex: Female
  Weight: 85.9 kg

DRUGS (7)
  1. INOTUZUMAB OZOGAMICIN [Suspect]
     Indication: ACUTE LYMPHOCYTIC LEUKAEMIA
     Dosage: IN 3-4 WEEK CYCLES
     Route: 042
     Dates: start: 20131223
  2. DAPSONE [Suspect]
     Indication: PNEUMONIA
     Route: 048
     Dates: start: 20140126, end: 20140128
  3. ACICLOVIR (ACICLOVIR) [Concomitant]
  4. FOLIC ACID (FOLIC ACID) [Concomitant]
  5. OMEPRAZOLE (OMEPRAZOLE) [Concomitant]
  6. PENICILLIN-V (PHENOXYMETHYLPENICILLIN) [Concomitant]
  7. POSACONAZOLE (POSACONAZOLE) [Concomitant]

REACTIONS (10)
  - Device related infection [None]
  - Klebsiella test positive [None]
  - Blood albumin decreased [None]
  - Blood fibrinogen increased [None]
  - Haemoglobin decreased [None]
  - Blood lactate dehydrogenase increased [None]
  - Blood potassium decreased [None]
  - Lymphocyte count decreased [None]
  - Mean cell haemoglobin decreased [None]
  - Escherichia infection [None]
